FAERS Safety Report 10963220 (Version 2)
Quarter: 2015Q2

REPORT INFORMATION
  Report Type: Spontaneous
  Country: FR (occurrence: FR)
  Receive Date: 20150327
  Receipt Date: 20150430
  Transmission Date: 20150821
  Serious: Yes (Hospitalization)
  Sender: FDA-Public Use
  Company Number: FR-ASTRAZENECA-2015SE23841

PATIENT
  Age: 29918 Day
  Sex: Female

DRUGS (6)
  1. ATACAND [Suspect]
     Active Substance: CANDESARTAN CILEXETIL
     Indication: HYPERTENSION
     Route: 048
     Dates: start: 20150120, end: 20150125
  2. VANCOMYCINE [Suspect]
     Active Substance: VANCOMYCIN
     Indication: DEVICE RELATED INFECTION
     Dosage: 1200 MG, TWO TIMES A DAY, NON AZ PRODUCT (MYLAN)
     Route: 042
     Dates: start: 20150114, end: 20150117
  3. VANCOMYCINE [Suspect]
     Active Substance: VANCOMYCIN
     Indication: DEVICE RELATED INFECTION
     Dosage: 800 MG, TWO TIMES A DAY, NON AZ PRODUCT (MYLAN)
     Route: 042
     Dates: start: 20150118, end: 20150122
  4. GENTAMICINE [Suspect]
     Active Substance: GENTAMICIN
     Indication: DEVICE RELATED INFECTION
     Dosage: 468 MG, EVERY DAY, NON AZ PRODUCT- PANPHARMA
     Route: 042
     Dates: start: 20150119, end: 20150124
  5. VANCOMYCINE [Suspect]
     Active Substance: VANCOMYCIN
     Indication: DEVICE RELATED INFECTION
     Dosage: 1200 MG AT MORNING AND 1000 MG AT NIGHT, NON AZ PRODUCT (MYLAN)
     Route: 042
     Dates: start: 20150117
  6. VANCOMYCINE [Suspect]
     Active Substance: VANCOMYCIN
     Indication: DEVICE RELATED INFECTION
     Dosage: 700 MG, TWO TIMES A DAY, NON AZ PRODUCT (MYLAN)
     Route: 042
     Dates: start: 20150123, end: 20150126

REACTIONS (4)
  - Rash maculo-papular [Recovered/Resolved]
  - Rhabdomyolysis [Unknown]
  - Acute kidney injury [Recovered/Resolved]
  - Toxic skin eruption [Unknown]

NARRATIVE: CASE EVENT DATE: 20150125
